FAERS Safety Report 9633651 (Version 1)
Quarter: 2013Q4

REPORT INFORMATION
  Report Type: Spontaneous
  Country: US (occurrence: US)
  Receive Date: 20131021
  Receipt Date: 20131021
  Transmission Date: 20140711
  Serious: No
  Sender: FDA-Public Use
  Company Number: US-PFIZER INC-2013300565

PATIENT
  Age: 63 Year
  Sex: Female
  Weight: 72.56 kg

DRUGS (1)
  1. NEURONTIN [Suspect]
     Indication: DEPRESSION
     Dosage: 1200 MG, DAILY
     Dates: start: 2011

REACTIONS (5)
  - Off label use [Unknown]
  - Pain in extremity [Unknown]
  - Neck pain [Unknown]
  - Musculoskeletal pain [Unknown]
  - Burning sensation [Unknown]
